FAERS Safety Report 25282449 (Version 1)
Quarter: 2025Q2

REPORT INFORMATION
  Report Type: Spontaneous
  Country: TW (occurrence: TW)
  Receive Date: 20250508
  Receipt Date: 20250508
  Transmission Date: 20250717
  Serious: Yes (Hospitalization)
  Sender: STRIDES
  Company Number: None

PATIENT
  Age: 53 Year
  Sex: Male

DRUGS (3)
  1. MYCOPHENOLIC ACID [Suspect]
     Active Substance: MYCOPHENOLIC ACID
     Indication: Immunosuppressant drug therapy
     Route: 048
     Dates: start: 2014
  2. TACROLIMUS [Suspect]
     Active Substance: TACROLIMUS
     Indication: Immunosuppressant drug therapy
     Route: 048
     Dates: start: 2014
  3. PREDNISOLONE [Suspect]
     Active Substance: PREDNISOLONE
     Indication: Immunosuppressant drug therapy
     Route: 048
     Dates: start: 2014

REACTIONS (5)
  - Nail disorder [Recovered/Resolved]
  - Skin graft rejection [Recovered/Resolved]
  - Oedema peripheral [Recovered/Resolved]
  - COVID-19 [Unknown]
  - Pustule [Recovered/Resolved]

NARRATIVE: CASE EVENT DATE: 20220101
